FAERS Safety Report 6343296-1 (Version None)
Quarter: 2009Q3

REPORT INFORMATION
  Report Type: 
  Country: None (occurrence: None)
  Receive Date: 20090908
  Receipt Date: 20090828
  Transmission Date: 20100115
  Serious: Yes (Other)
  Sender: FDA-Public Use
  Company Number: PHEH2008US03268

PATIENT
  Sex: Male

DRUGS (2)
  1. AREDIA [Suspect]
     Indication: METASTASES TO BONE
     Dosage: 90 MG MONTHLY
     Dates: start: 20050101
  2. ZOMETA [Suspect]

REACTIONS (6)
  - ANXIETY [None]
  - DEFORMITY [None]
  - EMOTIONAL DISTRESS [None]
  - INFECTION [None]
  - OSTEONECROSIS [None]
  - PAIN [None]
